FAERS Safety Report 21796253 (Version 2)
Quarter: 2023Q1

REPORT INFORMATION
  Report Type: Spontaneous
  Country: CN (occurrence: CN)
  Receive Date: 20221229
  Receipt Date: 20230111
  Transmission Date: 20230418
  Serious: Yes (Life-Threatening, Hospitalization)
  Sender: FDA-Public Use
  Company Number: CN-TEVA-2022-CN-2840287

PATIENT
  Age: 2 Month
  Sex: Male

DRUGS (24)
  1. AZITHROMYCIN [Suspect]
     Active Substance: AZITHROMYCIN
     Indication: Pneumonia viral
     Route: 065
  2. AZITHROMYCIN [Suspect]
     Active Substance: AZITHROMYCIN
     Indication: Cytomegalovirus infection
  3. DEXAMETHASONE [Suspect]
     Active Substance: DEXAMETHASONE
     Indication: Pneumonia viral
     Route: 065
  4. DEXAMETHASONE [Suspect]
     Active Substance: DEXAMETHASONE
     Indication: Cytomegalovirus infection
  5. PREDNISONE ACETATE [Suspect]
     Active Substance: PREDNISONE ACETATE
     Indication: Cytomegalovirus infection
     Route: 065
  6. PREDNISONE ACETATE [Suspect]
     Active Substance: PREDNISONE ACETATE
     Indication: Pneumonia viral
  7. METHYLPREDNISOLONE SODIUM SUCCINATE [Suspect]
     Active Substance: METHYLPREDNISOLONE SODIUM SUCCINATE
     Indication: Cytomegalovirus infection
     Dosage: 20 MILLIGRAM DAILY;
     Route: 065
  8. METHYLPREDNISOLONE SODIUM SUCCINATE [Suspect]
     Active Substance: METHYLPREDNISOLONE SODIUM SUCCINATE
     Indication: Pneumonia viral
  9. HUMAN IMMUNOGLOBULIN G [Suspect]
     Active Substance: HUMAN IMMUNOGLOBULIN G
     Indication: Pneumonia viral
     Dosage: 2.5 GRAM DAILY;
     Route: 042
  10. HUMAN IMMUNOGLOBULIN G [Suspect]
     Active Substance: HUMAN IMMUNOGLOBULIN G
     Indication: Pneumonia viral
  11. GANCICLOVIR [Suspect]
     Active Substance: GANCICLOVIR
     Indication: Cytomegalovirus infection
     Route: 065
  12. GANCICLOVIR [Suspect]
     Active Substance: GANCICLOVIR
     Indication: Pneumonia viral
  13. MEROPENEM [Suspect]
     Active Substance: MEROPENEM
     Indication: Anti-infective therapy
     Dosage: 300 MILLIGRAM DAILY;
     Route: 065
  14. SULFAMETHOXAZOLE\TRIMETHOPRIM [Suspect]
     Active Substance: SULFAMETHOXAZOLE\TRIMETHOPRIM
     Indication: Antibiotic therapy
     Dosage: 480 MG/KG DAILY;
     Route: 048
  15. CASPOFUNGIN [Suspect]
     Active Substance: CASPOFUNGIN
     Indication: Pneumocystis jirovecii pneumonia
     Dosage: 14.4 MILLIGRAM DAILY;
     Route: 065
  16. VANCOMYCIN [Suspect]
     Active Substance: VANCOMYCIN
     Indication: Antibiotic therapy
     Dosage: 50 MILLIGRAM DAILY;
     Route: 065
  17. CEFOPERAZONE SODIUM\SULBACTAM SODIUM [Suspect]
     Active Substance: CEFOPERAZONE SODIUM\SULBACTAM SODIUM
     Indication: Antibiotic therapy
     Dosage: 1200 MILLIGRAM DAILY;
     Route: 065
  18. ACYCLOVIR [Suspect]
     Active Substance: ACYCLOVIR
     Indication: Pneumocystis jirovecii pneumonia
     Dosage: 30 MG/KG DAILY;
     Route: 065
  19. CEFOTAXIME [Concomitant]
     Active Substance: CEFOTAXIME SODIUM
     Indication: Anti-infective therapy
     Route: 065
  20. IMIPENEM [Concomitant]
     Active Substance: IMIPENEM
     Indication: Anti-infective therapy
     Route: 065
  21. CEFTRIAXONE SODIUM [Concomitant]
     Active Substance: CEFTRIAXONE SODIUM
     Indication: Anti-infective therapy
     Route: 065
  22. CEFUROXIME SODIUM [Concomitant]
     Active Substance: CEFUROXIME SODIUM
     Indication: Anti-infective therapy
     Route: 065
  23. CEFIXIME [Concomitant]
     Active Substance: CEFIXIME
     Indication: Anti-infective therapy
     Route: 065
  24. HEPARIN [Concomitant]
     Active Substance: HEPARIN SODIUM
     Indication: Anticoagulant therapy
     Dosage: 0.5 ML/H
     Route: 065

REACTIONS (4)
  - Pneumocystis jirovecii pneumonia [Unknown]
  - Pneumothorax [Unknown]
  - Acute respiratory distress syndrome [Unknown]
  - Drug ineffective [Unknown]
